FAERS Safety Report 7381735 (Version 4)
Quarter: 2012Q4

REPORT INFORMATION
  Report Type: 
  Country: US (occurrence: US)
  Receive Date: 20100510
  Receipt Date: 20121226
  Transmission Date: 20130627
  Serious: Yes (Other)
  Sender: FDA-Public Use
  Company Number: US-BAYER-201021616NA

PATIENT
  Age: 43 Year
  Sex: Female
  Weight: 71 kg

DRUGS (8)
  1. YAZ [Suspect]
     Dosage: UNK UNK, QD
     Route: 048
     Dates: start: 200606, end: 200608
  2. YASMIN [Suspect]
     Dosage: UNK UNK, QD
     Route: 048
     Dates: start: 200606, end: 200608
  3. ADVIL [Concomitant]
     Dosage: UNK UNK, PRN
  4. PAXIL [Concomitant]
     Dosage: UNK
     Dates: start: 2001, end: 2006
  5. PAROXETINE [Concomitant]
     Indication: ANXIETY
     Dosage: 10 mg, QD
     Route: 048
  6. DICLOXACILLIN [Concomitant]
     Dosage: 500 mg, UNK
     Dates: start: 20071205
  7. FLUCONAZOLE [Concomitant]
     Dosage: 150 mg, UNK
     Dates: start: 20071213
  8. DIAZEPAM [Concomitant]
     Dosage: 10 mg, UNK
     Dates: start: 20070206

REACTIONS (1)
  - Cerebrovascular accident [None]
